FAERS Safety Report 17696327 (Version 2)
Quarter: 2020Q3

REPORT INFORMATION
  Report Type: Spontaneous
  Country: US (occurrence: US)
  Receive Date: 20200423
  Receipt Date: 20200911
  Transmission Date: 20201102
  Serious: Yes (Other)
  Sender: FDA-Public Use
  Company Number: US-NAPPMUNDI-USA-2020-0150295

PATIENT
  Age: 54 Year
  Sex: Male

DRUGS (6)
  1. OXYCODONE HCL CR TABLETS (SIMILAR TO NDA 22?272) [Suspect]
     Active Substance: OXYCODONE HYDROCHLORIDE
     Indication: PRODUCT USED FOR UNKNOWN INDICATION
     Route: 048
  2. HYDROCODONE BITARTRATE AND ACETAMINOPHEN [Suspect]
     Active Substance: ACETAMINOPHEN\HYDROCODONE BITARTRATE
     Indication: PRODUCT USED FOR UNKNOWN INDICATION
     Route: 048
  3. DEXEDRINE [Suspect]
     Active Substance: DEXTROAMPHETAMINE SULFATE
     Indication: PRODUCT USED FOR UNKNOWN INDICATION
     Route: 065
  4. OXYCONTIN [Suspect]
     Active Substance: OXYCODONE HYDROCHLORIDE
     Indication: PRODUCT USED FOR UNKNOWN INDICATION
     Route: 048
  5. OXYCODONE HCL TABLETS (91?490) [Suspect]
     Active Substance: OXYCODONE HYDROCHLORIDE
     Indication: PRODUCT USED FOR UNKNOWN INDICATION
     Route: 048
  6. OXYFAST [Suspect]
     Active Substance: OXYCODONE
     Indication: PRODUCT USED FOR UNKNOWN INDICATION
     Route: 065

REACTIONS (10)
  - Suicide attempt [Unknown]
  - Disturbance in attention [Unknown]
  - Drug dependence [Unknown]
  - Anxiety [Unknown]
  - Insomnia [Unknown]
  - Unevaluable event [Unknown]
  - Constipation [Unknown]
  - Paranoia [Unknown]
  - Confusional state [Unknown]
  - Withdrawal syndrome [Unknown]

NARRATIVE: CASE EVENT DATE: 201502
